FAERS Safety Report 6387958-9 (Version None)
Quarter: 2009Q3

REPORT INFORMATION
  Report Type: 
  Country: None (occurrence: None)
  Receive Date: 20090930
  Receipt Date: 20090922
  Transmission Date: 20100115
  Serious: Yes (Other)
  Sender: FDA-Public Use
  Company Number: FABR-1000945

PATIENT
  Age: 38 Year
  Sex: Female
  Weight: 60 kg

DRUGS (3)
  1. FABRAZYME [Suspect]
     Indication: FABRY'S DISEASE
     Dosage: 35 MG, Q2W, INTRAVENOUS
     Route: 042
     Dates: start: 20040101
  2. PRIMPERAN ELIXIR [Concomitant]
  3. PINEX (PARACETAMOL) [Concomitant]

REACTIONS (8)
  - ARTHRALGIA [None]
  - DRUG INEFFECTIVE [None]
  - EXERCISE TOLERANCE DECREASED [None]
  - FATIGUE [None]
  - INSOMNIA [None]
  - NAUSEA [None]
  - SLEEP DISORDER [None]
  - WITHDRAWAL SYNDROME [None]
